FAERS Safety Report 7645312-3 (Version None)
Quarter: 2011Q3

REPORT INFORMATION
  Report Type: 
  Country: None (occurrence: None)
  Receive Date: 20110729
  Receipt Date: 20110716
  Transmission Date: 20111222
  Serious: Yes (Other)
  Sender: FDA-Public Use
  Company Number: US-BAYER-2011-036357

PATIENT
  Age: 50 Year
  Sex: Male
  Weight: 54 kg

DRUGS (2)
  1. ALEVE (CAPLET) [Suspect]
     Indication: BACK PAIN
     Dosage: 1 DF, BID, BOTTLE COUNT 24S
  2. VITAMINS NOS [Concomitant]
     Dosage: UNK
     Route: 048

REACTIONS (6)
  - EYE IRRITATION [None]
  - ABNORMAL FAECES [None]
  - NAUSEA [None]
  - BOWEL MOVEMENT IRREGULARITY [None]
  - SKIN ODOUR ABNORMAL [None]
  - FAECES DISCOLOURED [None]
